FAERS Safety Report 25682460 (Version 1)
Quarter: 2025Q3

REPORT INFORMATION
  Report Type: Spontaneous
  Country: US (occurrence: US)
  Receive Date: 20250814
  Receipt Date: 20250814
  Transmission Date: 20251020
  Serious: No
  Sender: VERTEX
  Company Number: US-VERTEX PHARMACEUTICALS DOOEL SKOPJE-2025-013228

PATIENT
  Age: 4 Year
  Sex: Female

DRUGS (1)
  1. TRIKAFTA [Suspect]
     Active Substance: ELEXACAFTOR\IVACAFTOR\TEZACAFTOR
     Indication: Cystic fibrosis
     Route: 048

REACTIONS (6)
  - Frustration tolerance decreased [Unknown]
  - Anger [Unknown]
  - Emotional disorder [Unknown]
  - Aggression [Unknown]
  - Screaming [Unknown]
  - Defiant behaviour [Not Recovered/Not Resolved]
